FAERS Safety Report 17504979 (Version 1)
Quarter: 2020Q1

REPORT INFORMATION
  Report Type: Report from Study
  Country: None (occurrence: US)
  Receive Date: 20200305
  Receipt Date: 20200305
  Transmission Date: 20200409
  Serious: Yes (Other)
  Sender: FDA-Public Use
  Company Number: US-ABBVIE-19K-163-3003657-00

PATIENT
  Age: 58 Year
  Sex: Female

DRUGS (2)
  1. HUMIRA [Suspect]
     Active Substance: ADALIMUMAB
     Route: 058
     Dates: start: 20191108
  2. HUMIRA [Suspect]
     Active Substance: ADALIMUMAB
     Indication: RHEUMATOID ARTHRITIS
     Route: 058
     Dates: start: 20181102, end: 20191018

REACTIONS (5)
  - Pruritus [Recovered/Resolved]
  - Rash [Unknown]
  - Pain in extremity [Unknown]
  - Peripheral swelling [Unknown]
  - Foot deformity [Unknown]

NARRATIVE: CASE EVENT DATE: 20191108
